FAERS Safety Report 6128787-0 (Version None)
Quarter: 2009Q1

REPORT INFORMATION
  Report Type: 
  Country: None (occurrence: None)
  Receive Date: 20090320
  Receipt Date: 20040303
  Transmission Date: 20090719
  Serious: Yes (Hospitalization)
  Sender: FDA-Public Use
  Company Number: 005828

PATIENT
  Age: 12 Year
  Sex: Male
  Weight: 38 kg

DRUGS (4)
  1. BUSULFEX (BUSULFEX) INJECTION [Suspect]
     Indication: BONE MARROW TRANSPLANT
     Dosage: 3.2 MG/KG, QD, INTRAVENOUS
     Route: 042
     Dates: start: 20030429, end: 20030503
  2. MELPHALAN (MELPHALAN)INJECTION [Suspect]
     Indication: BONE MARROW TRANSPLANT
     Dosage: 140 MG/M2,  SINGLE,   INTRAVENOUS
     Route: 042
     Dates: start: 20030504, end: 20030504
  3. COTRIMOXAZOL FORTE (SULFAMETHOXAZOLE, TRIMETHOPRIM) [Concomitant]
  4. URSODIOL [Concomitant]

REACTIONS (4)
  - ESCHERICHIA SEPSIS [None]
  - HAEMATURIA [None]
  - PYELONEPHRITIS [None]
  - THROMBOCYTOPENIA [None]
